FAERS Safety Report 24086137 (Version 2)
Quarter: 2025Q3

REPORT INFORMATION
  Report Type: Spontaneous
  Country: EU (occurrence: EU)
  Receive Date: 20240712
  Receipt Date: 20250815
  Transmission Date: 20251021
  Serious: Yes (Other)
  Sender: MYLAN
  Company Number: None

PATIENT
  Age: 27 Year
  Sex: Male

DRUGS (36)
  1. DOXORUBICIN [Suspect]
     Active Substance: DOXORUBICIN
     Indication: Acute lymphocytic leukaemia recurrent
  2. DOXORUBICIN [Suspect]
     Active Substance: DOXORUBICIN
     Route: 065
  3. DOXORUBICIN [Suspect]
     Active Substance: DOXORUBICIN
     Route: 065
  4. DOXORUBICIN [Suspect]
     Active Substance: DOXORUBICIN
  5. DEXAMETHASONE [Suspect]
     Active Substance: DEXAMETHASONE
     Indication: Acute lymphocytic leukaemia recurrent
  6. DEXAMETHASONE [Suspect]
     Active Substance: DEXAMETHASONE
     Route: 065
  7. DEXAMETHASONE [Suspect]
     Active Substance: DEXAMETHASONE
     Route: 065
  8. DEXAMETHASONE [Suspect]
     Active Substance: DEXAMETHASONE
  9. METHOTREXATE [Suspect]
     Active Substance: METHOTREXATE
     Indication: Acute lymphocytic leukaemia
     Dates: start: 202003, end: 202108
  10. METHOTREXATE [Suspect]
     Active Substance: METHOTREXATE
     Route: 065
     Dates: start: 202003, end: 202108
  11. METHOTREXATE [Suspect]
     Active Substance: METHOTREXATE
     Route: 065
     Dates: start: 202003, end: 202108
  12. METHOTREXATE [Suspect]
     Active Substance: METHOTREXATE
     Dates: start: 202003, end: 202108
  13. CYCLOPHOSPHAMIDE [Suspect]
     Active Substance: CYCLOPHOSPHAMIDE
     Indication: Acute lymphocytic leukaemia recurrent
     Dosage: 300 MILLIGRAM/SQ. METER, BID (ON DAYS 1-3)
  14. CYCLOPHOSPHAMIDE [Suspect]
     Active Substance: CYCLOPHOSPHAMIDE
     Dosage: 300 MILLIGRAM/SQ. METER, BID (ON DAYS 1-3)
     Route: 065
  15. CYCLOPHOSPHAMIDE [Suspect]
     Active Substance: CYCLOPHOSPHAMIDE
     Dosage: 300 MILLIGRAM/SQ. METER, BID (ON DAYS 1-3)
     Route: 065
  16. CYCLOPHOSPHAMIDE [Suspect]
     Active Substance: CYCLOPHOSPHAMIDE
     Dosage: 300 MILLIGRAM/SQ. METER, BID (ON DAYS 1-3)
  17. VINCRISTINE [Suspect]
     Active Substance: VINCRISTINE
     Indication: Acute lymphocytic leukaemia recurrent
  18. VINCRISTINE [Suspect]
     Active Substance: VINCRISTINE
     Route: 065
  19. VINCRISTINE [Suspect]
     Active Substance: VINCRISTINE
     Route: 065
  20. VINCRISTINE [Suspect]
     Active Substance: VINCRISTINE
  21. MERCAPTOPURINE [Suspect]
     Active Substance: MERCAPTOPURINE
     Indication: Acute lymphocytic leukaemia recurrent
     Dates: start: 202003, end: 202108
  22. MERCAPTOPURINE [Suspect]
     Active Substance: MERCAPTOPURINE
     Route: 065
     Dates: start: 202003, end: 202108
  23. MERCAPTOPURINE [Suspect]
     Active Substance: MERCAPTOPURINE
     Route: 065
     Dates: start: 202003, end: 202108
  24. MERCAPTOPURINE [Suspect]
     Active Substance: MERCAPTOPURINE
     Dates: start: 202003, end: 202108
  25. INOTUZUMAB OZOGAMICIN [Concomitant]
     Active Substance: INOTUZUMAB OZOGAMICIN
     Indication: Acute lymphocytic leukaemia recurrent
  26. INOTUZUMAB OZOGAMICIN [Concomitant]
     Active Substance: INOTUZUMAB OZOGAMICIN
  27. INOTUZUMAB OZOGAMICIN [Concomitant]
     Active Substance: INOTUZUMAB OZOGAMICIN
     Route: 065
  28. INOTUZUMAB OZOGAMICIN [Concomitant]
     Active Substance: INOTUZUMAB OZOGAMICIN
     Route: 065
  29. INOTUZUMAB OZOGAMICIN [Concomitant]
     Active Substance: INOTUZUMAB OZOGAMICIN
  30. INOTUZUMAB OZOGAMICIN [Concomitant]
     Active Substance: INOTUZUMAB OZOGAMICIN
  31. INOTUZUMAB OZOGAMICIN [Concomitant]
     Active Substance: INOTUZUMAB OZOGAMICIN
     Route: 065
  32. INOTUZUMAB OZOGAMICIN [Concomitant]
     Active Substance: INOTUZUMAB OZOGAMICIN
     Route: 065
  33. INOTUZUMAB OZOGAMICIN [Concomitant]
     Active Substance: INOTUZUMAB OZOGAMICIN
     Dates: start: 20220518
  34. INOTUZUMAB OZOGAMICIN [Concomitant]
     Active Substance: INOTUZUMAB OZOGAMICIN
     Route: 065
     Dates: start: 20220518
  35. INOTUZUMAB OZOGAMICIN [Concomitant]
     Active Substance: INOTUZUMAB OZOGAMICIN
     Dates: start: 20220518
  36. INOTUZUMAB OZOGAMICIN [Concomitant]
     Active Substance: INOTUZUMAB OZOGAMICIN
     Route: 065
     Dates: start: 20220518

REACTIONS (3)
  - Hepatotoxicity [Unknown]
  - Transaminases increased [Recovered/Resolved]
  - Myelosuppression [Unknown]
